FAERS Safety Report 10043656 (Version 2)
Quarter: 2014Q1

REPORT INFORMATION
  Report Type: Spontaneous
  Country: US (occurrence: US)
  Receive Date: 20140328
  Receipt Date: 20140328
  Transmission Date: 20141002
  Serious: Yes (Hospitalization)
  Sender: FDA-Public Use
  Company Number: US-JNJFOC-20140118618

PATIENT
  Sex: Male
  Weight: 136.08 kg

DRUGS (21)
  1. XARELTO [Suspect]
     Indication: ATRIAL FIBRILLATION
     Route: 048
  2. XARELTO [Suspect]
     Indication: CEREBROVASCULAR ACCIDENT PROPHYLAXIS
     Route: 048
  3. VITAMIN D [Concomitant]
     Route: 065
  4. VITAMIN C [Concomitant]
     Route: 065
  5. CALCIUM AND VITAMIN D [Concomitant]
     Route: 065
  6. REPLIVA [Concomitant]
     Route: 065
  7. IRON [Concomitant]
     Route: 065
  8. FERREX [Concomitant]
     Dosage: 28 151 MG-200 MG-1 MG-0.8 MG
     Route: 048
  9. NYSTATIN [Concomitant]
     Dosage: 10,000 UNITS/GRAM
     Route: 061
  10. LASIX [Concomitant]
     Route: 048
  11. FOLIC ACID [Concomitant]
     Route: 048
  12. VYTORIN [Concomitant]
     Route: 048
  13. VYTORIN [Concomitant]
     Route: 048
  14. TERAZOSIN [Concomitant]
     Route: 048
  15. AMLODIPINE [Concomitant]
     Route: 048
  16. QUINAPRIL [Concomitant]
     Route: 048
  17. METFORMIN [Concomitant]
     Route: 048
  18. ONGLYZA [Concomitant]
     Route: 048
  19. CARVEDILOL [Concomitant]
     Route: 048
  20. PROAIR HFA [Concomitant]
     Route: 055
  21. ADVAIR DISKUS [Concomitant]
     Route: 055

REACTIONS (4)
  - Gastrointestinal haemorrhage [Recovered/Resolved]
  - Erosive duodenitis [Unknown]
  - Gastritis erosive [Unknown]
  - Haemoglobin decreased [Unknown]
